FAERS Safety Report 9254926 (Version 1)
Quarter: 2013Q2

REPORT INFORMATION
  Report Type: Spontaneous
  Country: FR (occurrence: FR)
  Receive Date: 20130425
  Receipt Date: 20130425
  Transmission Date: 20140414
  Serious: Yes (Disabling)
  Sender: FDA-Public Use
  Company Number: FR-LUNDBECK-DKLU1090530

PATIENT
  Age: 11 Year
  Sex: Male

DRUGS (6)
  1. ONFI [Suspect]
     Indication: EPILEPSY
     Route: 048
  2. DEPAKINE [Suspect]
     Indication: EPILEPSY
     Route: 048
  3. DEPAKINE [Suspect]
     Route: 048
     Dates: start: 201212
  4. KEPPRA [Suspect]
     Indication: EPILEPSY
     Route: 048
     Dates: start: 20120221, end: 201212
  5. NEURONTIN [Suspect]
     Indication: EPILEPSY
     Route: 048
  6. BOTOX [Suspect]
     Indication: DROOLING
     Route: 050
     Dates: start: 20120315, end: 20120315

REACTIONS (1)
  - Gingival hyperplasia [Recovering/Resolving]
